FAERS Safety Report 16405814 (Version 1)
Quarter: 2019Q2

REPORT INFORMATION
  Report Type: Spontaneous
  Country: KR (occurrence: KR)
  Receive Date: 20190607
  Receipt Date: 20190607
  Transmission Date: 20190711
  Serious: Yes (Other)
  Sender: FDA-Public Use
  Company Number: KR-FRESENIUS KABI-FK201906348

PATIENT
  Age: 49 Year
  Sex: Female

DRUGS (1)
  1. LIDOCAINE (MANUFACTURER UNKNOWN) [Suspect]
     Active Substance: LIDOCAINE
     Indication: LOCAL ANAESTHESIA
     Dosage: INCREASED IN INCREMENTS OF 1 NG WITHIN THE RANGE OF 1-10 NG AND BY 10 NG WITHIN THE RANGE OF 10-100
     Route: 042

REACTIONS (1)
  - Anaphylactic reaction [Recovered/Resolved]
